FAERS Safety Report 4499575-6 (Version None)
Quarter: 2004Q4

REPORT INFORMATION
  Report Type: 
  Country: None (occurrence: None)
  Receive Date: 20040928
  Receipt Date: 20040825
  Transmission Date: 20050328
  Serious: No
  Sender: FDA-Public Use
  Company Number: 04P-163-0270720-00

PATIENT
  Age: 53 Year
  Sex: Male
  Weight: 70.3075 kg

DRUGS (6)
  1. HUMIRA [Suspect]
     Indication: RHEUMATOID ARTHRITIS
     Dosage: SEE IMAGE  SUBCUTANEOUS
     Route: 058
     Dates: start: 20040301, end: 20040703
  2. HUMIRA [Suspect]
     Indication: RHEUMATOID ARTHRITIS
     Dosage: SEE IMAGE  SUBCUTANEOUS
     Route: 058
     Dates: start: 20040703
  3. PREDNISONE [Concomitant]
  4. FOLIC ACID [Concomitant]
  5. MULTI-VITAMINS [Concomitant]
  6. SHARK CARTILAGE [Concomitant]

REACTIONS (1)
  - BLOOD PRESSURE INCREASED [None]
